FAERS Safety Report 4679405-X (Version None)
Quarter: 2005Q2

REPORT INFORMATION
  Report Type: 
  Country: None (occurrence: None)
  Receive Date: 20050531
  Receipt Date: 20050519
  Transmission Date: 20051028
  Serious: Yes (Life-Threatening, Hospitalization, Other)
  Sender: FDA-Public Use
  Company Number: 2005-05-1513

PATIENT
  Age: 48 Year
  Sex: Female

DRUGS (4)
  1. INTRON A [Suspect]
     Indication: MALIGNANT MELANOMA
     Dates: end: 19990702
  2. INTRON A [Suspect]
  3. PAXIL [Suspect]
     Dosage: 20 MG ORAL
     Route: 048
     Dates: start: 19990618, end: 19990702
  4. PAXIL [Suspect]

REACTIONS (1)
  - IDIOPATHIC THROMBOCYTOPENIC PURPURA [None]
